FAERS Safety Report 6523542-1 (Version None)
Quarter: 2009Q4

REPORT INFORMATION
  Report Type: 
  Country: None (occurrence: None)
  Receive Date: 20091231
  Receipt Date: 20091221
  Transmission Date: 20100525
  Serious: Yes (Hospitalization)
  Sender: FDA-Public Use
  Company Number: PHHY2009NL57667

PATIENT
  Sex: Male
  Weight: 86 kg

DRUGS (2)
  1. DIOVAN [Suspect]
     Indication: DIABETIC NEPHROPATHY
     Dosage: 80 MG, QD
     Dates: start: 20060101
  2. GLICLAZIDE [Suspect]
     Indication: DIABETES MELLITUS
     Dosage: 80 MG, TID
     Dates: start: 20081115

REACTIONS (2)
  - EOSINOPHILIA [None]
  - GENERALISED ERYTHEMA [None]
